FAERS Safety Report 14446589 (Version 1)
Quarter: 2018Q1

REPORT INFORMATION
  Report Type: Spontaneous
  Country: US (occurrence: US)
  Receive Date: 20180126
  Receipt Date: 20180126
  Transmission Date: 20180509
  Serious: Yes (Hospitalization)
  Sender: FDA-Public Use
  Company Number: US-NOVOPROD-581672

PATIENT
  Age: 59 Year
  Sex: Female
  Weight: 103.4 kg

DRUGS (3)
  1. TURMERIC                           /01079602/ [Concomitant]
     Active Substance: HERBALS\TURMERIC
     Indication: PRODUCT USED FOR UNKNOWN INDICATION
  2. CELL FORTE IP-6 + INOSITOL [Concomitant]
     Indication: PRODUCT USED FOR UNKNOWN INDICATION
  3. NOVOLIN 70/30 [Suspect]
     Active Substance: INSULIN HUMAN
     Indication: TYPE 2 DIABETES MELLITUS
     Dosage: SLIDING SCALE
     Route: 058
     Dates: start: 2005

REACTIONS (4)
  - Blood glucose increased [Recovered/Resolved]
  - Pyrexia [Unknown]
  - Pulmonary oedema [Not Recovered/Not Resolved]
  - Myocardial infarction [Recovered/Resolved]

NARRATIVE: CASE EVENT DATE: 20170321
